FAERS Safety Report 4331133-6 (Version None)
Quarter: 2004Q1

REPORT INFORMATION
  Report Type: 
  Country: None (occurrence: None)
  Receive Date: 20040331
  Receipt Date: 20040322
  Transmission Date: 20041129
  Serious: No
  Sender: FDA-Public Use
  Company Number: 2004IM000474

PATIENT
  Age: 49 Year
  Sex: Male
  Weight: 81.1939 kg

DRUGS (4)
  1. INFERGEN [Suspect]
     Indication: HEPATITIS C
     Dates: start: 20040101, end: 20040301
  2. NADOLOL [Concomitant]
  3. DOXEPIN HCL [Concomitant]
  4. ZYRTEC [Concomitant]

REACTIONS (1)
  - HEPATIC ENCEPHALOPATHY [None]
